FAERS Safety Report 5595185-8 (Version None)
Quarter: 2008Q1

REPORT INFORMATION
  Report Type: 
  Country: None (occurrence: None)
  Receive Date: 20080117
  Receipt Date: 20080107
  Transmission Date: 20080703
  Serious: Yes (Death, Hospitalization)
  Sender: FDA-Public Use
  Company Number: US-PFIZER INC-2007052809

PATIENT
  Sex: Male
  Weight: 96.2 kg

DRUGS (22)
  1. MARAVIROC [Suspect]
     Indication: HIV TEST POSITIVE
     Route: 048
     Dates: start: 20060113, end: 20071206
  2. MEPRON [Concomitant]
     Route: 048
  3. ACTOS [Concomitant]
     Route: 048
     Dates: start: 20050101
  4. GLYBURIDE [Concomitant]
     Route: 048
     Dates: start: 20000101
  5. LISINOPRIL [Concomitant]
     Route: 048
     Dates: start: 20050901
  6. HYDROCODONE [Concomitant]
     Dosage: TEXT:5/500MG
     Route: 048
     Dates: start: 20010101
  7. RANITIDINE [Concomitant]
     Route: 048
     Dates: start: 20020101
  8. ALBUTEROL [Concomitant]
     Route: 048
     Dates: start: 19940101
  9. CENTRUM [Concomitant]
     Dosage: TEXT:1 DF
     Route: 048
     Dates: start: 19960101
  10. LIPITOR [Concomitant]
     Route: 048
     Dates: start: 20060726
  11. ASCORBIC ACID [Concomitant]
     Dosage: TEXT:1 DF
     Route: 048
     Dates: start: 20061010
  12. RITONAVIR [Concomitant]
     Route: 048
     Dates: start: 20060113
  13. FOSAMPRENAVIR [Concomitant]
     Route: 048
     Dates: start: 20060113
  14. VIREAD [Concomitant]
     Route: 048
     Dates: start: 20060113
  15. ZERIT [Concomitant]
     Route: 048
     Dates: start: 20060113, end: 20070609
  16. GUAIVENT [Concomitant]
     Dosage: TEXT:5/5000 MG
     Route: 048
     Dates: start: 19940101
  17. BECONASE [Concomitant]
     Route: 048
     Dates: start: 19950101
  18. METFORMIN HCL [Concomitant]
     Route: 048
  19. TYLENOL [Concomitant]
     Route: 048
  20. NOVOLOG [Concomitant]
     Route: 058
     Dates: start: 20070627
  21. TENOFOVIR [Concomitant]
     Route: 048
  22. LANTUS [Concomitant]
     Route: 058

REACTIONS (2)
  - HODGKIN'S DISEASE [None]
  - HYPERGLYCAEMIA [None]
